FAERS Safety Report 8879565 (Version 1)
Quarter: 2012Q4

REPORT INFORMATION
  Report Type: 
  Country: US (occurrence: US)
  Receive Date: 20121031
  Receipt Date: 20121031
  Transmission Date: 20130627
  Serious: No
  Sender: FDA-Public Use
  Company Number: US-B.I. PHARMACEUTICALS,INC./RIDGEFIELD-2012-BP-17330BP

PATIENT
  Age: 86 Year
  Sex: Female

DRUGS (2)
  1. PRADAXA [Suspect]
     Dates: start: 20111104
  2. PRADAXA [Suspect]
     Dates: start: 20120721

REACTIONS (3)
  - Oedema peripheral [Unknown]
  - Fatigue [Unknown]
  - Dysstasia [Unknown]
